FAERS Safety Report 10267385 (Version 2)
Quarter: 2014Q3

REPORT INFORMATION
  Report Type: Spontaneous
  Country: FI (occurrence: FI)
  Receive Date: 20140630
  Receipt Date: 20140723
  Transmission Date: 20150326
  Serious: Yes (Other)
  Sender: FDA-Public Use
  Company Number: FI-ASTELLAS-2014EU008928

PATIENT
  Sex: Female

DRUGS (2)
  1. PROTOPIC [Suspect]
     Active Substance: TACROLIMUS
     Indication: PRURITUS
     Dosage: UNK, UNKNOWN FREQ.
     Route: 061
     Dates: start: 201402
  2. PROTOPIC [Suspect]
     Active Substance: TACROLIMUS
     Indication: DRY SKIN

REACTIONS (1)
  - Eczema herpeticum [Unknown]

NARRATIVE: CASE EVENT DATE: 201402
